FAERS Safety Report 20335879 (Version 1)
Quarter: 2022Q1

REPORT INFORMATION
  Report Type: Spontaneous
  Country: US (occurrence: US)
  Receive Date: 20220114
  Receipt Date: 20220114
  Transmission Date: 20220423
  Serious: No
  Sender: FDA-Public Use
  Company Number: US-MYLANLABS-2022M1001331

PATIENT
  Age: 84 Year
  Sex: Female
  Weight: 52.16 kg

DRUGS (5)
  1. ESTRADIOL [Suspect]
     Active Substance: ESTRADIOL
     Indication: Dyspareunia
     Dosage: 0.01 PERCENT, 3XW
     Route: 067
     Dates: start: 202108
  2. PROLIA [Concomitant]
     Active Substance: DENOSUMAB
     Indication: Osteoporosis
  3. OMEPRAZOLE [Concomitant]
     Active Substance: OMEPRAZOLE
     Indication: Gastrooesophageal reflux disease
  4. SIMVASTATIN [Concomitant]
     Active Substance: SIMVASTATIN
     Indication: Blood cholesterol abnormal
     Dosage: 40 MILLIGRAM, QD
     Route: 048
  5. CHLORTHALIDONE [Concomitant]
     Active Substance: CHLORTHALIDONE
     Indication: Blood pressure abnormal
     Dosage: 12 MILLIGRAM

REACTIONS (2)
  - Vaginal odour [Unknown]
  - Off label use [Unknown]

NARRATIVE: CASE EVENT DATE: 20210801
